FAERS Safety Report 6651419-X (Version None)
Quarter: 2010Q1

REPORT INFORMATION
  Report Type: 
  Country: None (occurrence: None)
  Receive Date: 20100325
  Receipt Date: 20100312
  Transmission Date: 20100710
  Serious: Yes (Hospitalization)
  Sender: FDA-Public Use
  Company Number: DE-ELI_LILLY_AND_COMPANY-DE201003003663

PATIENT
  Age: 63 Year
  Sex: Male

DRUGS (4)
  1. ZYPADHERA [Suspect]
     Dosage: 300 MG, UNKNOWN
     Route: 030
     Dates: start: 20100312
  2. ZYPREXA [Concomitant]
     Dosage: 25 MG, UNKNOWN
     Route: 048
  3. DIAZEPAM [Concomitant]
     Dosage: 4 MG, 3/D
     Route: 048
  4. HALOPERIDOL [Concomitant]
     Dosage: UNK, OTHER (10-15MG)
     Route: 065

REACTIONS (4)
  - APNOEIC ATTACK [None]
  - CORNEAL REFLEX DECREASED [None]
  - CYANOSIS [None]
  - LOSS OF CONSCIOUSNESS [None]
